FAERS Safety Report 12897871 (Version 1)
Quarter: 2016Q4

REPORT INFORMATION
  Report Type: Spontaneous
  Country: TR (occurrence: TR)
  Receive Date: 20161031
  Receipt Date: 20161031
  Transmission Date: 20170207
  Serious: Yes (Other)
  Sender: FDA-Public Use
  Company Number: TR-SA-2016SA195571

PATIENT
  Sex: Male

DRUGS (2)
  1. ENOXAPARIN SODIUM. [Suspect]
     Active Substance: ENOXAPARIN SODIUM
     Route: 064
  2. METHYLDOPA. [Suspect]
     Active Substance: METHYLDOPA
     Route: 064

REACTIONS (6)
  - Foetal distress syndrome [Unknown]
  - Skull malformation [Unknown]
  - Foetal exposure during pregnancy [Unknown]
  - Arachnoid cyst [Unknown]
  - Head circumference abnormal [Unknown]
  - Cerebral disorder [Unknown]
